FAERS Safety Report 13850150 (Version 2)
Quarter: 2017Q3

REPORT INFORMATION
  Report Type: Spontaneous
  Country: ET (occurrence: ET)
  Receive Date: 20170809
  Receipt Date: 20170822
  Transmission Date: 20171127
  Serious: Yes (Death)
  Sender: FDA-Public Use
  Company Number: ET-PFIZER INC-2017337881

PATIENT
  Age: 5 Year
  Sex: Female

DRUGS (1)
  1. ZITHROMAX [Suspect]
     Active Substance: AZITHROMYCIN DIHYDRATE
     Indication: TRACHOMA
     Dosage: 250 MG TABLET (2), STAT (AT ONCE)
     Route: 048
     Dates: start: 20170730, end: 20170730

REACTIONS (2)
  - Choking [Fatal]
  - Aspiration [Fatal]

NARRATIVE: CASE EVENT DATE: 20170730
